FAERS Safety Report 23995887 (Version 1)
Quarter: 2024Q2

REPORT INFORMATION
  Report Type: Spontaneous
  Country: US (occurrence: US)
  Receive Date: 20240620
  Receipt Date: 20240620
  Transmission Date: 20240716
  Serious: Yes (Other)
  Sender: FDA-Public Use
  Company Number: US-TEVA-VS-3206975

PATIENT
  Age: 64 Year
  Sex: Female
  Weight: 77.11 kg

DRUGS (1)
  1. GRANIX [Suspect]
     Active Substance: TBO-FILGRASTIM
     Indication: Neutropenia
     Dosage: 480/0.8 MCG/ML EVERY 7-10 DAYS
     Route: 058
     Dates: start: 20240524

REACTIONS (6)
  - Hypersensitivity [Recovered/Resolved]
  - Heart rate irregular [Recovered/Resolved]
  - Joint swelling [Recovered/Resolved]
  - Nasopharyngitis [Unknown]
  - Neck pain [Recovered/Resolved]
  - Peripheral swelling [Recovered/Resolved]

NARRATIVE: CASE EVENT DATE: 20240524
